FAERS Safety Report 4517136-7 (Version None)
Quarter: 2005Q1

REPORT INFORMATION
  Report Type: 
  Country: None (occurrence: None)
  Receive Date: 20041005
  Receipt Date: 20040413
  Transmission Date: 20050727
  Serious: Yes (Other)
  Sender: FDA-Public Use
  Company Number: PHEH2004US04337

PATIENT
  Age: 67 Year
  Sex: Female

DRUGS (4)
  1. ESTALIS COMBIPATCH (NORETHISTERONE ACETATE, ESTRADIOL)TRANS-THERAPEUTI [Suspect]
     Dosage: 0.05/0.14 MG/DAY, QW2, TRANSDERMAL
     Route: 062
     Dates: start: 20011017, end: 20040324
  2. ASPIRIN [Concomitant]
  3. CALCIUM ^NAF^ [Concomitant]
  4. MULTIVITAMIN [Concomitant]

REACTIONS (1)
  - BREAST CANCER IN SITU [None]
